FAERS Safety Report 6859228-3 (Version None)
Quarter: 2010Q3

REPORT INFORMATION
  Report Type: 
  Country: None (occurrence: None)
  Receive Date: 20100719
  Receipt Date: 20080214
  Transmission Date: 20110219
  Serious: No
  Sender: FDA-Public Use
  Company Number: US-PFIZER INC-2008017684

PATIENT
  Sex: Female
  Weight: 104.54 kg

DRUGS (11)
  1. CHANTIX [Suspect]
     Indication: SMOKING CESSATION THERAPY
     Dates: start: 20080101
  2. TOPROL-XL [Concomitant]
  3. COZAAR [Concomitant]
  4. NORVASC [Concomitant]
  5. VYTORIN [Concomitant]
  6. NEXIUM [Concomitant]
  7. SYNTHROID [Concomitant]
  8. PAXIL [Concomitant]
  9. ALLEGRA [Concomitant]
  10. ACETYLSALICYLIC ACID [Concomitant]
  11. PLAVIX [Concomitant]

REACTIONS (3)
  - ABNORMAL DREAMS [None]
  - SLEEP TALKING [None]
  - UNEVALUABLE EVENT [None]
